FAERS Safety Report 6798385-4 (Version None)
Quarter: 2010Q2

REPORT INFORMATION
  Report Type: 
  Country: None (occurrence: None)
  Receive Date: 20100622
  Receipt Date: 20100609
  Transmission Date: 20101027
  Serious: Yes (Other)
  Sender: FDA-Public Use
  Company Number: 2010EN000185

PATIENT
  Age: 51 Day
  Sex: Male
  Weight: 2.4 kg

DRUGS (3)
  1. ABELCET [Suspect]
     Indication: INFECTION
     Dosage: 5 MG/KG;QD;IV
     Route: 042
     Dates: start: 20100330, end: 20100427
  2. VANCOMYCIN [Concomitant]
  3. PERFALGAN [Concomitant]

REACTIONS (3)
  - ASPARTATE AMINOTRANSFERASE INCREASED [None]
  - GAMMA-GLUTAMYLTRANSFERASE INCREASED [None]
  - LIVER INJURY [None]
